FAERS Safety Report 25094487 (Version 1)
Quarter: 2025Q1

REPORT INFORMATION
  Report Type: Spontaneous
  Country: JP (occurrence: JP)
  Receive Date: 20250319
  Receipt Date: 20250319
  Transmission Date: 20250409
  Serious: Yes (Other)
  Sender: PFIZER
  Company Number: JP-PFIZER INC-PV202500029166

PATIENT
  Age: 61 Year
  Sex: Female
  Weight: 57 kg

DRUGS (14)
  1. IDARUBICIN HYDROCHLORIDE [Suspect]
     Active Substance: IDARUBICIN HYDROCHLORIDE
     Indication: Leukaemia
  2. CYTARABINE [Suspect]
     Active Substance: CYTARABINE
     Indication: Leukaemia
  3. FLUDARABINE [Suspect]
     Active Substance: FLUDARABINE PHOSPHATE
  4. BUSULFAN [Suspect]
     Active Substance: BUSULFAN
  5. MELPHALAN [Suspect]
     Active Substance: MELPHALAN
  6. PREDNISOLONE [Suspect]
     Active Substance: PREDNISOLONE
     Indication: Acute graft versus host disease
     Dosage: 0.5 MG/KG, DAILY (30MG/DAY)
  7. PREDNISOLONE [Suspect]
     Active Substance: PREDNISOLONE
     Dosage: 15 MG, DAILY
  8. PREDNISOLONE [Suspect]
     Active Substance: PREDNISOLONE
     Dosage: 5 MG, DAILY
  9. AZACITIDINE [Concomitant]
     Active Substance: AZACITIDINE
  10. HERBALS [Concomitant]
     Active Substance: HERBALS
     Dosage: 7.5 G, DAILY
     Route: 048
  11. TACROLIMUS [Concomitant]
     Active Substance: TACROLIMUS
     Indication: Prophylaxis against graft versus host disease
  12. TACROLIMUS [Concomitant]
     Active Substance: TACROLIMUS
     Dosage: 2.5 MG, DAILY
  13. MYCOPHENOLATE MOFETIL [Concomitant]
     Active Substance: MYCOPHENOLATE MOFETIL
     Indication: Prophylaxis against graft versus host disease
     Dosage: 1500 MG, DAILY
  14. MYCOPHENOLATE MOFETIL [Concomitant]
     Active Substance: MYCOPHENOLATE MOFETIL
     Dosage: 500 MG, DAILY

REACTIONS (1)
  - Hot flush [Recovering/Resolving]
